FAERS Safety Report 9970471 (Version 1)
Quarter: 2014Q1

REPORT INFORMATION
  Report Type: Report from Study
  Country: US (occurrence: US)
  Receive Date: 20140306
  Receipt Date: 20140306
  Transmission Date: 20141002
  Serious: No
  Sender: FDA-Public Use
  Company Number: US-ABBVIE-13P-163-1149028-00

PATIENT
  Age: 46 Year
  Sex: Female

DRUGS (8)
  1. HUMIRA [Suspect]
     Indication: RHEUMATOID ARTHRITIS
     Dates: start: 20130425
  2. ARAVA [Concomitant]
     Indication: RHEUMATOID ARTHRITIS
  3. LYRICA [Concomitant]
     Indication: PAIN
  4. ASPIRIN [Concomitant]
     Indication: PROPHYLAXIS
  5. SPIRIVA [Concomitant]
     Indication: ASTHMA
  6. CYMBALTA [Concomitant]
     Indication: DEPRESSION
  7. LORTAB [Concomitant]
     Indication: PAIN
  8. PREVACID [Concomitant]
     Indication: GASTROOESOPHAGEAL REFLUX DISEASE

REACTIONS (3)
  - Rhinorrhoea [Recovered/Resolved]
  - Nasal congestion [Not Recovered/Not Resolved]
  - Cough [Not Recovered/Not Resolved]
